FAERS Safety Report 9960036 (Version 2)
Quarter: 2014Q1

REPORT INFORMATION
  Report Type: Report from Study
  Country: US (occurrence: US)
  Receive Date: 20140305
  Receipt Date: 20140305
  Transmission Date: 20141002
  Serious: No
  Sender: FDA-Public Use
  Company Number: US-ABBVIE-12P-163-0938436-00

PATIENT
  Age: 53 Year
  Sex: Female
  Weight: 65.83 kg

DRUGS (11)
  1. HUMIRA 40 MG/0.8 ML PEN [Suspect]
     Indication: CROHN^S DISEASE
     Dates: start: 20120516, end: 20120516
  2. HUMIRA 40 MG/0.8 ML PEN [Suspect]
  3. PANTOPRAZOLE [Concomitant]
     Indication: NAUSEA
  4. PANTOPRAZOLE [Concomitant]
     Indication: CROHN^S DISEASE
  5. ASACOL [Concomitant]
     Indication: CROHN^S DISEASE
  6. PREDNISONE [Concomitant]
     Indication: CROHN^S DISEASE
  7. DELZICOL [Concomitant]
     Indication: CROHN^S DISEASE
  8. CO Q 10 [Concomitant]
     Indication: SUPPLEMENTATION THERAPY
  9. CHOLEST OFF NATURE MADE [Concomitant]
     Indication: BLOOD CHOLESTEROL
  10. GRAPE SEED [Concomitant]
     Indication: PRODUCT USED FOR UNKNOWN INDICATION
  11. RESVERATROL [Concomitant]
     Indication: PRODUCT USED FOR UNKNOWN INDICATION

REACTIONS (14)
  - Monoplegia [Recovered/Resolved]
  - Hyperaesthesia [Recovered/Resolved]
  - Joint swelling [Recovered/Resolved]
  - Anorectal discomfort [Recovered/Resolved]
  - Erythema [Recovered/Resolved]
  - Localised oedema [Recovered/Resolved]
  - Muscle spasms [Recovered/Resolved]
  - Injection site pain [Recovered/Resolved]
  - Injection site erythema [Recovered/Resolved]
  - Nausea [Recovered/Resolved]
  - Injection site bruising [Recovered/Resolved]
  - Injection site haemorrhage [Recovered/Resolved]
  - Arthralgia [Recovered/Resolved]
  - Blood calcium decreased [Recovered/Resolved]
